FAERS Safety Report 21616033 (Version 1)
Quarter: 2022Q4

REPORT INFORMATION
  Report Type: Report from Study
  Country: US (occurrence: US)
  Receive Date: 20221118
  Receipt Date: 20221118
  Transmission Date: 20230112
  Serious: No
  Sender: FDA-Public Use
  Company Number: US-ABBVIE-4187918

PATIENT
  Age: 49 Year
  Sex: Female

DRUGS (5)
  1. HUMIRA [Suspect]
     Active Substance: ADALIMUMAB
     Indication: Psoriasis
     Route: 058
  2. HUMIRA [Suspect]
     Active Substance: ADALIMUMAB
     Route: 058
  3. COVID-19 Vaccine [Concomitant]
     Indication: COVID-19 immunisation
     Dosage: 1 IN ONCE
     Route: 030
  4. COVID-19 Vaccine [Concomitant]
     Indication: COVID-19 immunisation
     Dosage: 1 IN ONCE, BOOSTER DOSE
     Route: 030
  5. AMOXICILLIN [Suspect]
     Active Substance: AMOXICILLIN
     Indication: Product used for unknown indication
     Route: 065

REACTIONS (3)
  - White blood cell count increased [Unknown]
  - Oropharyngeal pain [Unknown]
  - Psoriasis [Not Recovered/Not Resolved]

NARRATIVE: CASE EVENT DATE: 20221001
